FAERS Safety Report 5060102-6 (Version None)
Quarter: 2006Q3

REPORT INFORMATION
  Report Type: 
  Country: None (occurrence: None)
  Receive Date: 20060718
  Receipt Date: 20060707
  Transmission Date: 20061208
  Serious: Yes (Other)
  Sender: FDA-Public Use
  Company Number: 200612957GDS

PATIENT
  Age: 80 Year
  Sex: Male
  Weight: 75 kg

DRUGS (4)
  1. AVELOX [Suspect]
     Indication: INFLUENZA
     Dosage: 400 MG, QD,ORAL
     Route: 048
     Dates: start: 20060608, end: 20060617
  2. INSULIN [Concomitant]
  3. METFORMIN [Concomitant]
  4. CLARITIN-D [Concomitant]

REACTIONS (2)
  - HYPOACUSIS [None]
  - TINNITUS [None]
